FAERS Safety Report 17452565 (Version 3)
Quarter: 2020Q2

REPORT INFORMATION
  Report Type: Spontaneous
  Country: US (occurrence: US)
  Receive Date: 20200224
  Receipt Date: 20200413
  Transmission Date: 20200713
  Serious: Yes (Other)
  Sender: FDA-Public Use
  Company Number: US-ASTRAZENECA-2020SE21195

PATIENT
  Age: 24084 Day
  Sex: Male
  Weight: 107.5 kg

DRUGS (3)
  1. BYDUREON [Suspect]
     Active Substance: EXENATIDE
     Indication: TYPE 2 DIABETES MELLITUS
     Route: 065
  2. BYDUREON BCISE [Suspect]
     Active Substance: EXENATIDE
     Indication: DIABETES MELLITUS
     Route: 065
     Dates: start: 202002
  3. METFORMIN [Concomitant]
     Active Substance: METFORMIN HYDROCHLORIDE

REACTIONS (12)
  - Injection site bruising [Unknown]
  - Injection site pain [Unknown]
  - Device delivery system issue [Unknown]
  - Arthritis [Not Recovered/Not Resolved]
  - Injection site infection [Unknown]
  - Wrong technique in device usage process [Unknown]
  - Intentional device misuse [Unknown]
  - Injection site cellulitis [Recovered/Resolved]
  - Muscle contracture [Unknown]
  - Injection site abscess [Unknown]
  - Finger deformity [Unknown]
  - Injection site haemorrhage [Unknown]

NARRATIVE: CASE EVENT DATE: 20190303
